FAERS Safety Report 7354411-5 (Version None)
Quarter: 2011Q1

REPORT INFORMATION
  Report Type: 
  Country: None (occurrence: None)
  Receive Date: 20110316
  Receipt Date: 20110302
  Transmission Date: 20110831
  Serious: Yes (Other)
  Sender: FDA-Public Use
  Company Number: PHHY2011CA02948

PATIENT
  Sex: Female

DRUGS (6)
  1. EXJADE [Suspect]
     Indication: MYELODYSPLASTIC SYNDROME
     Dosage: 625 MG, QD
     Route: 048
     Dates: start: 20101001
  2. ELTROXIN [Concomitant]
     Dosage: 75 MG, QD
     Route: 048
  3. ADVAIR DISKUS 100/50 [Concomitant]
     Dosage: 250 MG, 1 PUFF BID
  4. CALCIUM [Concomitant]
     Dosage: 1500 MG, UNK
  5. MAGNESIUM [Concomitant]
     Dosage: UNK
     Route: 048
  6. VITAMIN D [Concomitant]
     Dosage: UNK
     Route: 048

REACTIONS (8)
  - FAECAL INCONTINENCE [None]
  - PRURITUS [None]
  - CHAPPED LIPS [None]
  - DIARRHOEA [None]
  - BLOOD IRON INCREASED [None]
  - HEPATOMEGALY [None]
  - HEPATIC ENZYME INCREASED [None]
  - LIP DRY [None]
